FAERS Safety Report 8240313 (Version 10)
Quarter: 2019Q3

REPORT INFORMATION
  Report Type: Report from Study
  Country: US (occurrence: US)
  Receive Date: 20111110
  Receipt Date: 20190822
  Transmission Date: 20191005
  Serious: Yes (Death, Life-Threatening, Hospitalization, Other)
  Sender: FDA-Public Use
  Company Number: US-UCBSA-045003

PATIENT
  Age: 70 Year
  Sex: Female
  Weight: 93 kg

DRUGS (17)
  1. FLEXERIL [Concomitant]
     Active Substance: CYCLOBENZAPRINE HYDROCHLORIDE
     Indication: MUSCLE SPASMS
     Dosage: 10 MG. 1 TABLET EVERY 8 HOURS
     Route: 048
  2. XANAX [Concomitant]
     Active Substance: ALPRAZOLAM
     Indication: ABDOMINAL PAIN
     Dosage: 0.25 MG
     Route: 048
  3. XANAX [Concomitant]
     Active Substance: ALPRAZOLAM
     Indication: ABDOMINAL PAIN
     Dosage: .25 MG, AS NEEDED (PRN)
     Route: 048
     Dates: start: 20111005
  4. TRIAMTERENE AND HYDROCHLOROTHIAZIDE [Concomitant]
     Active Substance: HYDROCHLOROTHIAZIDE\TRIAMTERENE
     Dosage: 37.5-25 MG DAILY
     Route: 048
  5. CERTOLIZUMAB PEGOL VS PLACEBO [Suspect]
     Active Substance: CERTOLIZUMAB PEGOL
     Indication: PSORIATIC ARTHROPATHY
     Route: 058
     Dates: start: 20100701
  6. AMARYL [Concomitant]
     Active Substance: GLIMEPIRIDE
     Indication: TYPE 2 DIABETES MELLITUS
     Dosage: .5 MG, ONCE DAILY (QD)
     Route: 048
     Dates: start: 2007
  7. PRILOSEC [Concomitant]
     Active Substance: OMEPRAZOLE MAGNESIUM
     Dosage: 20 MG, 2X/DAY (BID)
     Route: 048
     Dates: start: 2009
  8. ZOCOR [Concomitant]
     Active Substance: SIMVASTATIN
     Indication: BLOOD CHOLESTEROL INCREASED
     Dosage: 40 MG, ONCE DAILY (QD)
     Route: 048
     Dates: start: 2002
  9. DYAZIDE [Concomitant]
     Active Substance: HYDROCHLOROTHIAZIDE\TRIAMTERENE
     Indication: HYPERTENSION
     Dosage: DOSE: 37.5MG/25MG
     Route: 048
     Dates: start: 2007
  10. FLONASE [Concomitant]
     Active Substance: FLUTICASONE PROPIONATE
     Indication: HYPERSENSITIVITY
     Dosage: 50 ?G, ONCE DAILY (QD)
     Route: 055
     Dates: start: 2000
  11. PROAIR HFA [Concomitant]
     Active Substance: ALBUTEROL SULFATE
     Dosage: 90 MCG, 2 PUFFS AS INSTRUCTED EVERY 6 HOURS. AS NECESSARY
     Route: 055
  12. PRILOSEC [Concomitant]
     Active Substance: OMEPRAZOLE MAGNESIUM
     Indication: GASTROOESOPHAGEAL REFLUX DISEASE
     Dosage: 20MG DAILY
     Route: 048
  13. METHOTREXATE. [Concomitant]
     Active Substance: METHOTREXATE
     Indication: PSORIATIC ARTHROPATHY
     Dosage: 15 MG, WEEKLY (QW)
     Route: 048
     Dates: start: 2009
  14. PERCOCET [Concomitant]
     Active Substance: ACETAMINOPHEN\OXYCODONE HYDROCHLORIDE
     Indication: PAIN
     Dosage: 5-325 MG. 1-2 TABS EVERY 6 HOURS AS NEEDED.
     Route: 048
  15. FOLIC ACID. [Concomitant]
     Active Substance: FOLIC ACID
     Indication: NUTRITIONAL SUPPLEMENTATION
     Dosage: 1 MG, ONCE DAILY (QD)
     Route: 048
     Dates: start: 2009
  16. ATENOLOL. [Concomitant]
     Active Substance: ATENOLOL
     Indication: HYPERTENSION
     Dosage: 25 MG, ONCE DAILY (QD)
     Route: 048
     Dates: start: 1985
  17. ADVAIR DISKUS [Concomitant]
     Active Substance: FLUTICASONE PROPIONATE\SALMETEROL XINAFOATE
     Indication: ASTHMA
     Dosage: DOSE:1, 250-50 MCG/DOSE
     Route: 055
     Dates: start: 2000

REACTIONS (3)
  - Urinary tract infection [Recovered/Resolved]
  - Splenomegaly [Not Recovered/Not Resolved]
  - Lymphoma [Fatal]

NARRATIVE: CASE EVENT DATE: 20111010
